FAERS Safety Report 6497529-1 (Version None)
Quarter: 2009Q4

REPORT INFORMATION
  Report Type: 
  Country: None (occurrence: None)
  Receive Date: 20091211
  Receipt Date: 20091125
  Transmission Date: 20100525
  Serious: Yes (Other)
  Sender: FDA-Public Use
  Company Number: GB-DEXPHARM-2006167

PATIENT
  Age: 58 Year
  Sex: Male

DRUGS (8)
  1. OMEPRAZOLE [Suspect]
     Indication: DYSPEPSIA
     Dosage: ORAL
     Route: 048
     Dates: start: 20060619, end: 20060619
  2. AMITRIPTYLINE [Suspect]
     Indication: DEPRESSION
     Dosage: ORAL
     Route: 048
  3. DEXAMETHASONE [Suspect]
     Indication: LYMPHOMA
     Dosage: ORAL
     Route: 048
     Dates: start: 20060401
  4. MABTHERA [Suspect]
     Indication: LYMPHOMA
     Dosage: INTRAVENOUS (NOT OTHERWISE SPECIFIED)
     Route: 042
     Dates: start: 20060619, end: 20060619
  5. VFEND [Suspect]
     Indication: ASPERGILLOSIS
     Dosage: 200 MG MILLIGRAM(S) SEP. DOSAGES / INTERVAL: 1 IN 1 DAY
     Dates: start: 20060401
  6. VFEND [Suspect]
     Indication: ASPERGILLOSIS
     Dosage: 300 MG MILLIGRAM(S) SEP. DOSAGES / INTERVAL: 2 IN 1 DAY
     Dates: start: 20060710
  7. VFEND [Suspect]
     Indication: ASPERGILLOSIS
     Dosage: 300 MG MILLIGRAM(S) SEP. DOSAGES / INTERVAL: 1 IN 1 DAY
     Dates: start: 20060707, end: 20060709
  8. ZOPICLONE [Suspect]
     Indication: INSOMNIA
     Dosage: ORAL
     Route: 048
     Dates: start: 20060401

REACTIONS (10)
  - AGITATION [None]
  - AMNESIA [None]
  - ASPERGILLOSIS [None]
  - BEDRIDDEN [None]
  - CHILLS [None]
  - CONFUSIONAL STATE [None]
  - DYSPEPSIA [None]
  - FEELING ABNORMAL [None]
  - INSOMNIA [None]
  - LYMPHOMA [None]
